FAERS Safety Report 18686449 (Version 1)
Quarter: 2020Q4

REPORT INFORMATION
  Report Type: Spontaneous
  Country: TR (occurrence: TR)
  Receive Date: 20201230
  Receipt Date: 20201230
  Transmission Date: 20210114
  Serious: Yes (Hospitalization)
  Sender: FDA-Public Use
  Company Number: TR-ANIPHARMA-2020-TR-000186

PATIENT
  Age: 54 Year
  Sex: Male

DRUGS (1)
  1. FLUCONAZOLE TABLETS (NON-SPECIFIC) [Suspect]
     Active Substance: FLUCONAZOLE
     Indication: ONYCHOMYCOSIS
     Dosage: 200 MG DAILY
     Route: 048

REACTIONS (6)
  - Axonal and demyelinating polyneuropathy [Recovered/Resolved]
  - Acute kidney injury [Recovered/Resolved]
  - Prescription drug used without a prescription [Recovered/Resolved]
  - Confusional state [Recovered/Resolved]
  - Lower gastrointestinal haemorrhage [Recovered/Resolved]
  - Thrombotic thrombocytopenic purpura [Recovered/Resolved]
